FAERS Safety Report 20845450 (Version 2)
Quarter: 2022Q2

REPORT INFORMATION
  Report Type: Spontaneous
  Country: US (occurrence: US)
  Receive Date: 20220518
  Receipt Date: 20220524
  Transmission Date: 20220721
  Serious: No
  Sender: FDA-Public Use
  Company Number: US-NOVARTISTESTPH-NVSC2022US114962

PATIENT
  Sex: Female

DRUGS (2)
  1. MEKINIST [Suspect]
     Active Substance: TRAMETINIB DIMETHYL SULFOXIDE
     Indication: Focal segmental glomerulosclerosis
     Dosage: 2 MG, QD
     Route: 048
     Dates: start: 20220325
  2. TAFINLAR [Suspect]
     Active Substance: DABRAFENIB MESYLATE
     Indication: Focal segmental glomerulosclerosis
     Dosage: 150 MG, BID
     Route: 048
     Dates: start: 20220325

REACTIONS (2)
  - Arthralgia [Unknown]
  - Product use in unapproved indication [Unknown]
